FAERS Safety Report 9670272 (Version 2)
Quarter: 2013Q4

REPORT INFORMATION
  Report Type: Spontaneous
  Country: US (occurrence: US)
  Receive Date: 20131105
  Receipt Date: 20131112
  Transmission Date: 20140711
  Serious: Yes (Other)
  Sender: FDA-Public Use
  Company Number: US-BAXTER-2013BAX043119

PATIENT
  Age: 72 Year
  Sex: Male

DRUGS (7)
  1. GAMMAGARD LIQUID [Suspect]
     Indication: IMMUNE THROMBOCYTOPENIC PURPURA
     Route: 042
     Dates: start: 2009
  2. GAMMAGARD LIQUID [Suspect]
     Route: 042
     Dates: start: 2010
  3. GAMMAGARD LIQUID [Suspect]
     Route: 042
     Dates: start: 2011
  4. GAMMAGARD LIQUID [Suspect]
     Route: 042
     Dates: start: 2012
  5. GAMMAGARD LIQUID [Suspect]
     Route: 042
     Dates: start: 201301
  6. GAMMAGARD LIQUID [Suspect]
     Dosage: 40 GRAM/ 400 ML
     Route: 042
  7. PREDNISONE [Concomitant]
     Indication: PLATELET COUNT DECREASED
     Dosage: 5 MG - 7.5 MG
     Route: 048

REACTIONS (4)
  - Hepatitis B virus test positive [Not Recovered/Not Resolved]
  - Hepatitis B surface antibody positive [Unknown]
  - Hepatitis B core antibody negative [Unknown]
  - Hepatitis B surface antigen negative [Unknown]
